FAERS Safety Report 8869100 (Version 1)
Quarter: 2012Q4

REPORT INFORMATION
  Report Type: 
  Country: US (occurrence: US)
  Receive Date: 20121023
  Receipt Date: 20121023
  Transmission Date: 20130627
  Serious: No
  Sender: FDA-Public Use
  Company Number: US-AMGEN-USASP2012053965

PATIENT
  Sex: Female
  Weight: 63.49 kg

DRUGS (10)
  1. ENBREL [Suspect]
     Indication: PRODUCT USED FOR UNKNOWN INDICATION
     Dosage: 50 mg/ml, qwk
  2. ZOCOR [Concomitant]
     Dosage: 5 mg, UNK
  3. METHOTREXATE [Concomitant]
     Dosage: 2.5 mg, UNK
  4. ASPIRIN LOW [Concomitant]
     Dosage: 81 mg, UNK
  5. OSCAL                              /00514701/ [Concomitant]
     Dosage: 500 mg, UNK
  6. D3 200 [Concomitant]
     Dosage: 200 UNK, UNK
  7. VITAMIN D /00107901/ [Concomitant]
     Dosage: 400 unit, UNK
  8. FISH OIL CONCENTRATE [Concomitant]
  9. FOLIC ACID [Concomitant]
     Dosage: UNK
  10. MAGNESIUM OXIDE [Concomitant]
     Dosage: 400 mg, UNK

REACTIONS (2)
  - Weight increased [Unknown]
  - Weight loss poor [Unknown]
